FAERS Safety Report 10738414 (Version 3)
Quarter: 2015Q1

REPORT INFORMATION
  Report Type: Spontaneous
  Country: US (occurrence: US)
  Receive Date: 20150126
  Receipt Date: 20150224
  Transmission Date: 20150721
  Serious: No
  Sender: FDA-Public Use
  Company Number: US-PFIZER INC-2015028000

PATIENT
  Age: 65 Year
  Sex: Female
  Weight: 48 kg

DRUGS (5)
  1. PROZAC [Concomitant]
     Active Substance: FLUOXETINE HYDROCHLORIDE
     Indication: BIPOLAR DISORDER
     Dosage: 5 MG, 1X/DAY
     Route: 048
  2. ESTRING [Suspect]
     Active Substance: ESTRADIOL
     Indication: DYSPAREUNIA
     Dosage: 1 MG, (LEAVE IN FOR 3 MONTHS)
     Route: 067
     Dates: start: 20150108, end: 20150110
  3. ESTRING [Suspect]
     Active Substance: ESTRADIOL
     Indication: VULVOVAGINAL DRYNESS
     Dosage: 2 MG, EVERY 3 MONTHS
     Route: 067
     Dates: start: 20150107, end: 20150118
  4. TRIAMCINOLONE [Concomitant]
     Active Substance: TRIAMCINOLONE
  5. CALCIUM + VIT D [Concomitant]
     Active Substance: CALCIUM\VITAMIN D
     Indication: BONE DISORDER
     Dosage: 600 MG, 1X/DAY
     Route: 048

REACTIONS (15)
  - Feeling jittery [Recovering/Resolving]
  - Hyperhidrosis [Recovered/Resolved]
  - Headache [Recovered/Resolved]
  - Musculoskeletal stiffness [Recovering/Resolving]
  - Hypoaesthesia [Unknown]
  - Muscle tightness [Not Recovered/Not Resolved]
  - Tremor [Recovering/Resolving]
  - Nervousness [Recovered/Resolved]
  - Sleep disorder [Not Recovered/Not Resolved]
  - Feeling abnormal [Unknown]
  - Paraesthesia oral [Recovered/Resolved]
  - Cheilitis [Recovering/Resolving]
  - Condition aggravated [Not Recovered/Not Resolved]
  - Dizziness [Recovering/Resolving]
  - Vulvovaginal discomfort [Recovered/Resolved]

NARRATIVE: CASE EVENT DATE: 201501
